FAERS Safety Report 26146596 (Version 3)
Quarter: 2025Q4

REPORT INFORMATION
  Report Type: Spontaneous
  Country: BR (occurrence: BR)
  Receive Date: 20251211
  Receipt Date: 20251223
  Transmission Date: 20260118
  Serious: Yes (Other)
  Sender: SANDOZ
  Company Number: BR-002147023-NVSC2025BR167420

PATIENT
  Age: 36 Year
  Sex: Female
  Weight: 70 kg

DRUGS (9)
  1. AMLODIPINE [Suspect]
     Active Substance: AMLODIPINE BESYLATE
     Indication: Hypertension
     Dosage: 1 DOSAGE FORM (5 MG) BID (1 TABLET AFTER LUNCH AND 1 TABLET AFTER DINNER)
  2. KESIMPTA [Suspect]
     Active Substance: OFATUMUMAB
     Indication: Relapsing-remitting multiple sclerosis
     Dosage: SOLUTION FOR INJECTION IN PREFILLED PEN
  3. KESIMPTA [Suspect]
     Active Substance: OFATUMUMAB
     Indication: Multiple sclerosis
     Dosage: UNK, OTHER (WEEKS 1, 2 AND 3)
  4. KESIMPTA [Suspect]
     Active Substance: OFATUMUMAB
     Dosage: UNK
  5. KESIMPTA [Suspect]
     Active Substance: OFATUMUMAB
     Dosage: 20 MG, (WEEKS 1, 2 AND 3 AND MONTHLY FROM WEEK 5 ONWARDS)
  6. KESIMPTA [Suspect]
     Active Substance: OFATUMUMAB
     Dosage: 20 MG/0,4 ML, OTHER (WEEK 4)
  7. ENALAPRIL [Concomitant]
     Active Substance: ENALAPRIL
     Indication: Hypertension
     Dosage: 1 DOSAGE FORM (20 MG) (TABLET), BID (1 TABLET WHEN SHE WAKES UP, AND 1 TABLET AT NIGHT)
  8. PAMELOR [Concomitant]
     Active Substance: NORTRIPTYLINE HYDROCHLORIDE
     Indication: Headache
     Dosage: 1 DOSAGE FORM (100 MG) (TABLET AT NIGHT), PRN
  9. PAMELOR [Concomitant]
     Active Substance: NORTRIPTYLINE HYDROCHLORIDE
     Dosage: 10 MG

REACTIONS (26)
  - Upper respiratory tract infection [Recovered/Resolved]
  - Urinary incontinence [Recovering/Resolving]
  - Concomitant disease aggravated [Unknown]
  - Pain in extremity [Recovered/Resolved]
  - Dysuria [Recovered/Resolved]
  - Gait disturbance [Recovered/Resolved]
  - Throat irritation [Recovered/Resolved]
  - Muscular weakness [Recovered/Resolved]
  - Enuresis [Recovered/Resolved]
  - COVID-19 [Recovered/Resolved]
  - Aphonia [Recovered/Resolved]
  - Chills [Recovered/Resolved]
  - Decreased immune responsiveness [Recovered/Resolved]
  - Oropharyngeal pain [Recovered/Resolved]
  - Sneezing [Recovered/Resolved]
  - Injection site pain [Unknown]
  - Pyrexia [Recovered/Resolved]
  - Pollakiuria [Recovered/Resolved]
  - Chest pain [Recovered/Resolved]
  - Muscle spasms [Recovered/Resolved]
  - Muscle spasms [Recovering/Resolving]
  - Malaise [Recovered/Resolved]
  - Somnolence [Recovered/Resolved]
  - Nocturia [Unknown]
  - Tremor [Recovered/Resolved]
  - Cough [Recovered/Resolved]

NARRATIVE: CASE EVENT DATE: 20251001
